FAERS Safety Report 6848733-1 (Version None)
Quarter: 2010Q3

REPORT INFORMATION
  Report Type: 
  Country: None (occurrence: None)
  Receive Date: 20100716
  Receipt Date: 20070905
  Transmission Date: 20110219
  Serious: No
  Sender: FDA-Public Use
  Company Number: US-PFIZER INC-2007074847

PATIENT
  Sex: Female

DRUGS (9)
  1. CHANTIX [Suspect]
     Indication: SMOKING CESSATION THERAPY
     Dates: start: 20070817
  2. SEROQUEL [Concomitant]
  3. TOPAMAX [Concomitant]
  4. EFFEXOR [Concomitant]
  5. REMERON [Concomitant]
  6. FUROSEMIDE [Concomitant]
  7. DOXEPIN HCL [Concomitant]
  8. PREDNISONE [Concomitant]
  9. ALLEGRA [Concomitant]

REACTIONS (1)
  - DRUG INEFFECTIVE [None]
